FAERS Safety Report 17962875 (Version 2)
Quarter: 2020Q3

REPORT INFORMATION
  Report Type: Report from Study
  Country: None (occurrence: US)
  Receive Date: 20200630
  Receipt Date: 20200713
  Transmission Date: 20201103
  Serious: No
  Sender: FDA-Public Use
  Company Number: US-BIOVITRUM-2020US1166

PATIENT
  Sex: Female

DRUGS (1)
  1. KINERET [Suspect]
     Active Substance: ANAKINRA
     Indication: STILL^S DISEASE
     Route: 058
     Dates: start: 20190314

REACTIONS (11)
  - Mobility decreased [Unknown]
  - Rash papular [Unknown]
  - Joint contracture [Unknown]
  - Fall [Unknown]
  - Product dose omission issue [Unknown]
  - Nodal osteoarthritis [Unknown]
  - Pallor [Unknown]
  - Arthralgia [Unknown]
  - Off label use [Unknown]
  - Joint swelling [Unknown]
  - Upper limb fracture [Unknown]
